FAERS Safety Report 5878106-X (Version None)
Quarter: 2008Q3

REPORT INFORMATION
  Report Type: 
  Country: None (occurrence: None)
  Receive Date: 20080911
  Receipt Date: 20080909
  Transmission Date: 20090109
  Serious: No
  Sender: FDA-Public Use
  Company Number: JP-EISAI MEDICAL RESEARCH-E2090-00545-SPO-JP

PATIENT
  Age: 54 Year
  Sex: Male

DRUGS (1)
  1. EXCEGRAN [Suspect]
     Indication: POST-TRAUMATIC EPILEPSY
     Dosage: UNKNOWN
     Route: 048

REACTIONS (1)
  - DRUG RASH WITH EOSINOPHILIA AND SYSTEMIC SYMPTOMS [None]
